FAERS Safety Report 7454451-1 (Version None)
Quarter: 2011Q2

REPORT INFORMATION
  Report Type: 
  Country: None (occurrence: None)
  Receive Date: 20110425
  Receipt Date: 20110408
  Transmission Date: 20111010
  Serious: Yes (Hospitalization, Other)
  Sender: FDA-Public Use
  Company Number: AUR-APL-2011-01308

PATIENT
  Age: 42 Year
  Sex: Female

DRUGS (4)
  1. SIMVASTATIN [Suspect]
     Indication: DYSLIPIDAEMIA
     Dosage: 20MG-DAILY-ORAL
     Route: 048
     Dates: start: 20110113, end: 20110115
  2. SULFASALAZINE [Suspect]
     Indication: DYSLIPIDAEMIA
     Dosage: 500MG-BID-ORAL
     Route: 048
     Dates: start: 20110113, end: 20110202
  3. PREDNISONE [Concomitant]
  4. XYLOCAINE [Concomitant]

REACTIONS (5)
  - GASTROINTESTINAL DISORDER [None]
  - LIVER INJURY [None]
  - DRUG RASH WITH EOSINOPHILIA AND SYSTEMIC SYMPTOMS [None]
  - MYALGIA [None]
  - HEPATIC NECROSIS [None]
